FAERS Safety Report 18050787 (Version 1)
Quarter: 2020Q3

REPORT INFORMATION
  Report Type: Spontaneous
  Country: US (occurrence: US)
  Receive Date: 20200721
  Receipt Date: 20200721
  Transmission Date: 20201103
  Serious: Yes (Other)
  Sender: FDA-Public Use
  Company Number: US-TAKEDA-2020TUS031569

PATIENT

DRUGS (1)
  1. ULORIC [Suspect]
     Active Substance: FEBUXOSTAT
     Indication: TYPE 2 DIABETES MELLITUS
     Dosage: 40 MILLIGRAM, QD
     Route: 048

REACTIONS (3)
  - Cerebrovascular disorder [Unknown]
  - Hyperlipidaemia [Unknown]
  - Essential hypertension [Unknown]
